FAERS Safety Report 13542303 (Version 1)
Quarter: 2017Q2

REPORT INFORMATION
  Report Type: Spontaneous
  Country: US (occurrence: US)
  Receive Date: 20170512
  Receipt Date: 20170512
  Transmission Date: 20170830
  Serious: Yes (Other)
  Sender: FDA-Public Use
  Company Number: US-ROCHE-769419

PATIENT
  Sex: Male

DRUGS (4)
  1. TAXOL [Concomitant]
     Active Substance: PACLITAXEL
     Route: 065
  2. AVASTIN [Suspect]
     Active Substance: BEVACIZUMAB
     Indication: NON-SMALL CELL LUNG CANCER
     Route: 042
  3. CARBOPLATIN. [Concomitant]
     Active Substance: CARBOPLATIN
     Route: 065
  4. ALIMTA [Suspect]
     Active Substance: PEMETREXED DISODIUM
     Indication: NON-SMALL CELL LUNG CANCER
     Route: 065

REACTIONS (1)
  - Colitis [Unknown]
